FAERS Safety Report 15907925 (Version 1)
Quarter: 2019Q1

REPORT INFORMATION
  Report Type: Spontaneous
  Country: IT (occurrence: IT)
  Receive Date: 20190204
  Receipt Date: 20190204
  Transmission Date: 20190417
  Serious: No
  Sender: FDA-Public Use
  Company Number: IT-AMREGENT-20182264

PATIENT
  Sex: Female

DRUGS (1)
  1. FERINJECT [Suspect]
     Active Substance: FERRIC CARBOXYMALTOSE
     Dosage: 2 VIALS OF 500 MG 1 IN 1 TOTAL
     Route: 041

REACTIONS (1)
  - Hypophosphataemia [Recovered/Resolved]
